FAERS Safety Report 7217851-0 (Version None)
Quarter: 2011Q1

REPORT INFORMATION
  Report Type: 
  Country: None (occurrence: None)
  Receive Date: 20110110
  Receipt Date: 20061205
  Transmission Date: 20110831
  Serious: Yes (Other)
  Sender: FDA-Public Use
  Company Number: PHHY2006CL02737

PATIENT
  Age: 69 Year
  Sex: Male

DRUGS (2)
  1. TAREG [Suspect]
  2. NEOSINTROM [Suspect]

REACTIONS (1)
  - LOWER LIMB FRACTURE [None]
